FAERS Safety Report 4663610-2 (Version None)
Quarter: 2005Q2

REPORT INFORMATION
  Report Type: 
  Country: None (occurrence: None)
  Receive Date: 20050517
  Receipt Date: 20050506
  Transmission Date: 20051028
  Serious: Yes (Other)
  Sender: FDA-Public Use
  Company Number: US-GLAXOSMITHKLINE-A0557463A

PATIENT
  Age: 79 Year
  Sex: Female
  Weight: 46 kg

DRUGS (2)
  1. OS-CAL 500+D TABLETS [Suspect]
     Indication: MINERAL SUPPLEMENTATION
     Route: 048
     Dates: start: 19850101
  2. OS-CAL ULTRA 600 PLUS [Suspect]
     Indication: MINERAL SUPPLEMENTATION
     Route: 048

REACTIONS (6)
  - BONE DISORDER [None]
  - JOINT SWELLING [None]
  - LIMB DEFORMITY [None]
  - RHEUMATOID ARTHRITIS [None]
  - STRESS [None]
  - TOE DEFORMITY [None]
